FAERS Safety Report 9145733 (Version 1)
Quarter: 2013Q1

REPORT INFORMATION
  Report Type: Spontaneous
  Country: US (occurrence: None)
  Receive Date: 20130227
  Receipt Date: 20130227
  Transmission Date: 20140127
  Serious: Yes (Other)
  Sender: FDA-Public Use
  Company Number: None

PATIENT
  Age: 30 Year
  Sex: Male
  Weight: 104.33 kg

DRUGS (2)
  1. VENLAFAXINE [Suspect]
     Indication: HEADACHE
     Dosage: 75MG ONCE DAILY PO
     Route: 048
     Dates: start: 20130131, end: 20130226
  2. VENLAFAXINE [Suspect]
     Dosage: 37.5MG ONCE DAILY PO
     Route: 048
     Dates: start: 20121130, end: 20130130

REACTIONS (5)
  - Aggression [None]
  - Verbal abuse [None]
  - Physical abuse [None]
  - Aggression [None]
  - Imprisonment [None]
